FAERS Safety Report 8303728-6 (Version None)
Quarter: 2012Q2

REPORT INFORMATION
  Report Type: 
  Country: None (occurrence: None)
  Receive Date: 20120423
  Receipt Date: 20120410
  Transmission Date: 20120825
  Serious: Yes (Hospitalization)
  Sender: FDA-Public Use
  Company Number: US-SANOFI-AVENTIS-2012SA024849

PATIENT
  Age: 81 Year
  Sex: Male
  Weight: 82.1 kg

DRUGS (22)
  1. PROSCAR [Concomitant]
  2. COREG [Concomitant]
  3. FORTAZ [Concomitant]
  4. FLAXSEED OIL [Concomitant]
  5. LISINOPRIL [Concomitant]
  6. MIRALAX [Concomitant]
  7. NOVOLOG [Concomitant]
  8. ZOFRAN [Concomitant]
  9. XARELTO [Suspect]
     Indication: THROMBOSIS PROPHYLAXIS
     Route: 048
     Dates: start: 20110928, end: 20110929
  10. NORVASC [Concomitant]
  11. FERROUS GLUCONATE [Concomitant]
  12. VITAMIN B COMPLEX CAP [Concomitant]
  13. LOVENOX [Suspect]
     Indication: THROMBOSIS PROPHYLAXIS
     Route: 058
     Dates: start: 20110926
  14. ASPIRIN [Suspect]
     Indication: ANTIPLATELET THERAPY
     Route: 048
     Dates: start: 20110926
  15. LANTUS [Concomitant]
  16. VITAMINS NOS [Concomitant]
  17. ZOCOR [Concomitant]
  18. APAP TAB [Concomitant]
  19. SODIUM CHLORIDE [Concomitant]
  20. PLAVIX [Suspect]
     Indication: ANTIPLATELET THERAPY
     Route: 048
     Dates: start: 20110926
  21. PEPCID [Concomitant]
  22. FISH OIL [Concomitant]

REACTIONS (2)
  - DEEP VEIN THROMBOSIS [None]
  - OEDEMA PERIPHERAL [None]
